FAERS Safety Report 5736342-7 (Version None)
Quarter: 2008Q2

REPORT INFORMATION
  Report Type: 
  Country: None (occurrence: None)
  Receive Date: 20080513
  Receipt Date: 20080506
  Transmission Date: 20081010
  Serious: Yes (Life-Threatening, Hospitalization)
  Sender: FDA-Public Use
  Company Number: FR-ELI_LILLY_AND_COMPANY-FR200805001298

PATIENT
  Age: 53 Year
  Sex: Female

DRUGS (4)
  1. BYETTA [Suspect]
     Indication: TYPE 2 DIABETES MELLITUS
     Dosage: 5 UG, 2/D
     Route: 058
     Dates: start: 20080501, end: 20080504
  2. METFORMIN HCL [Concomitant]
     Indication: TYPE 2 DIABETES MELLITUS
     Route: 048
  3. SULFONAMIDES, UREA DERIVATIVES [Concomitant]
     Indication: TYPE 2 DIABETES MELLITUS
     Route: 048
  4. ANGIOTENSIN II ANTAGONISTS AND DIURETICS [Concomitant]
     Indication: HYPERTENSION
     Route: 048

REACTIONS (7)
  - CARDIOGENIC SHOCK [None]
  - COMA [None]
  - KETONURIA [None]
  - LACTIC ACIDOSIS [None]
  - LEUKOCYTOSIS [None]
  - RENAL FAILURE ACUTE [None]
  - VOMITING [None]
